FAERS Safety Report 8325303-X (Version None)
Quarter: 2012Q2

REPORT INFORMATION
  Report Type: 
  Country: None (occurrence: None)
  Receive Date: 20120501
  Receipt Date: 20120416
  Transmission Date: 20120825
  Serious: Yes (Death)
  Sender: FDA-Public Use
  Company Number: CA-ROCHE-1063592

PATIENT

DRUGS (6)
  1. PREDNISONE [Concomitant]
  2. LANSOPRAZOLE [Concomitant]
  3. ACTEMRA [Suspect]
     Indication: JUVENILE ARTHRITIS
     Route: 064
     Dates: start: 20110518, end: 20120223
  4. SULFATRIM [Concomitant]
  5. TYLENOL ARTHRITIS [Concomitant]
  6. BIRTH CONTROL PILL (UNK INGREDIENTS) [Concomitant]

REACTIONS (2)
  - MATERNAL EXPOSURE TIMING UNSPECIFIED [None]
  - FOETAL DEATH [None]
